FAERS Safety Report 7395385-0 (Version None)
Quarter: 2011Q2

REPORT INFORMATION
  Report Type: 
  Country: None (occurrence: None)
  Receive Date: 20110405
  Receipt Date: 20110322
  Transmission Date: 20111010
  Serious: Yes (Hospitalization)
  Sender: FDA-Public Use
  Company Number: CA-JNJFOC-20110305186

PATIENT
  Age: 59 Year
  Sex: Female
  Weight: 70.8 kg

DRUGS (5)
  1. REMICADE [Suspect]
     Indication: RHEUMATOID ARTHRITIS
     Route: 042
  2. VENTOLIN [Concomitant]
     Indication: ASTHMA
     Dosage: 1 - 8 X DIE
     Route: 055
  3. LYRICA [Concomitant]
     Indication: PAIN
     Dosage: DIE
     Route: 048
  4. METHOTREXATE [Suspect]
     Indication: RHEUMATOID ARTHRITIS
     Route: 058
  5. SEROQUEL [Concomitant]
     Dosage: DIE
     Route: 048

REACTIONS (4)
  - ASTHMA [None]
  - BRONCHITIS [None]
  - LUNG DISORDER [None]
  - SINUSITIS [None]
